FAERS Safety Report 8544544-X (Version None)
Quarter: 2012Q3

REPORT INFORMATION
  Report Type: 
  Country: None (occurrence: None)
  Receive Date: 20120727
  Receipt Date: 20120720
  Transmission Date: 20120928
  Serious: Yes (Other)
  Sender: FDA-Public Use
  Company Number: US-UCBSA-062390

PATIENT
  Age: 63 Year

DRUGS (2)
  1. KEPPRA [Suspect]
     Route: 042
  2. LISINOPRIL [Suspect]

REACTIONS (1)
  - ANGIOEDEMA [None]
